FAERS Safety Report 19855361 (Version 1)
Quarter: 2021Q3

REPORT INFORMATION
  Report Type: Spontaneous
  Country: US (occurrence: US)
  Receive Date: 20210916
  Receipt Date: 20210916
  Transmission Date: 20211014
  Serious: No
  Sender: FDA-Public Use
  Company Number: None

PATIENT
  Age: 11 Year
  Sex: Male

DRUGS (7)
  1. PREDNISONE. [Concomitant]
     Active Substance: PREDNISONE
  2. DORZOLAMIDE?TIMOLOL [Concomitant]
     Active Substance: DORZOLAMIDE\TIMOLOL
  3. DUREZOL [Concomitant]
     Active Substance: DIFLUPREDNATE
  4. CYCLOPENTOLATE. [Concomitant]
     Active Substance: CYCLOPENTOLATE
  5. FOLIC ACID. [Concomitant]
     Active Substance: FOLIC ACID
  6. OTREXUP [Suspect]
     Active Substance: METHOTREXATE
     Indication: POLYARTHRITIS
     Route: 058
     Dates: start: 20210324
  7. FAMOTIDINE. [Concomitant]
     Active Substance: FAMOTIDINE

REACTIONS (1)
  - Vomiting [None]

NARRATIVE: CASE EVENT DATE: 20210916
